FAERS Safety Report 11335842 (Version 1)
Quarter: 2015Q3

REPORT INFORMATION
  Report Type: Spontaneous
  Country: DK (occurrence: DK)
  Receive Date: 20150804
  Receipt Date: 20150804
  Transmission Date: 20151125
  Serious: Yes (Hospitalization)
  Sender: FDA-Public Use
  Company Number: DK-BAYER-2015-388406

PATIENT
  Age: 41 Year
  Sex: Female

DRUGS (1)
  1. MIRENA [Suspect]
     Active Substance: LEVONORGESTREL
     Indication: PRODUCT USED FOR UNKNOWN INDICATION
     Dosage: 20 MCG/24HR, CONT
     Route: 015
     Dates: start: 201109, end: 201409

REACTIONS (11)
  - Varicose vein operation [Recovered/Resolved]
  - Chest discomfort [Unknown]
  - Migraine [Unknown]
  - Pain [Unknown]
  - Pain in extremity [Unknown]
  - Arthralgia [Unknown]
  - Sensory disturbance [Unknown]
  - Thrombophlebitis superficial [Unknown]
  - Headache [Recovered/Resolved]
  - Varicose vein [Unknown]
  - Palpitations [Unknown]

NARRATIVE: CASE EVENT DATE: 20111101
